FAERS Safety Report 9890313 (Version 1)
Quarter: 2014Q1

REPORT INFORMATION
  Report Type: Report from Study
  Country: FR (occurrence: FR)
  Receive Date: 20140212
  Receipt Date: 20140212
  Transmission Date: 20141002
  Serious: Yes (Hospitalization, Other)
  Sender: FDA-Public Use
  Company Number: FR-ROCHE-1342742

PATIENT
  Sex: Female

DRUGS (18)
  1. RITUXIMAB [Suspect]
     Indication: RHEUMATOID ARTHRITIS
     Route: 042
     Dates: start: 20080307
  2. RITUXIMAB [Suspect]
     Route: 042
     Dates: start: 20080321
  3. RITUXIMAB [Suspect]
     Route: 042
     Dates: start: 20080909
  4. RITUXIMAB [Suspect]
     Route: 042
     Dates: start: 20080924
  5. RITUXIMAB [Suspect]
     Route: 042
     Dates: start: 20090226
  6. RITUXIMAB [Suspect]
     Route: 042
     Dates: start: 20090311
  7. RITUXIMAB [Suspect]
     Route: 042
     Dates: start: 20091104
  8. RITUXIMAB [Suspect]
     Route: 042
     Dates: start: 20091202
  9. RITUXIMAB [Suspect]
     Route: 042
     Dates: start: 20100917
  10. RITUXIMAB [Suspect]
     Route: 042
     Dates: start: 20101005
  11. RITUXIMAB [Suspect]
     Route: 042
     Dates: start: 20110915
  12. RITUXIMAB [Suspect]
     Route: 042
     Dates: start: 20110930
  13. METHOTREXATE [Concomitant]
     Route: 065
  14. PLAQUENIL [Concomitant]
     Route: 065
  15. CORTANCYL [Concomitant]
     Route: 065
  16. CORTANCYL [Concomitant]
     Route: 065
  17. FUCIDINE [Concomitant]
     Route: 065
     Dates: start: 201003
  18. ERYTHROMYCINE [Concomitant]
     Route: 065
     Dates: start: 201003

REACTIONS (16)
  - Nausea [Recovered/Resolved]
  - Melanocytic naevus [Recovered/Resolved]
  - Aphthous stomatitis [Recovered/Resolved]
  - Pilonidal cyst [Recovered/Resolved]
  - Hidradenitis [Recovered/Resolved with Sequelae]
  - Visual field defect [Not Recovered/Not Resolved]
  - Nasopharyngitis [Recovered/Resolved]
  - Vertigo [Recovered/Resolved]
  - Rhinorrhoea [Recovered/Resolved]
  - Prurigo [Recovered/Resolved]
  - Ovarian cyst [Recovered/Resolved]
  - Papilloma viral infection [Not Recovered/Not Resolved]
  - Alopecia [Not Recovered/Not Resolved]
  - Bronchitis [Unknown]
  - Cough [Recovered/Resolved]
  - Pyrexia [Recovered/Resolved]
